FAERS Safety Report 12448451 (Version 1)
Quarter: 2016Q2

REPORT INFORMATION
  Report Type: Spontaneous
  Country: JP (occurrence: JP)
  Receive Date: 20160608
  Receipt Date: 20160608
  Transmission Date: 20160815
  Serious: Yes (Death)
  Sender: FDA-Public Use
  Company Number: JP-MALLINCKRODT-T201602223

PATIENT
  Age: 43 Year
  Sex: Female

DRUGS (17)
  1. LYRICA [Concomitant]
     Active Substance: PREGABALIN
     Dosage: 150 MG
     Route: 048
     Dates: start: 20151105
  2. CELECOX [Concomitant]
     Active Substance: CELECOXIB
     Indication: ANALGESIC THERAPY
     Dosage: 200 MG
     Route: 048
     Dates: start: 20151013
  3. MORPHINE [Concomitant]
     Active Substance: MORPHINE
     Dosage: 1.7 MG
     Route: 008
     Dates: start: 20151014
  4. METHADONE [Suspect]
     Active Substance: METHADONE HYDROCHLORIDE
     Dosage: 90 MG (270 MG TOTAL DOSE)
     Route: 048
     Dates: start: 20151111, end: 20151113
  5. CALONAL [Concomitant]
     Active Substance: ACETAMINOPHEN
     Indication: ANALGESIC THERAPY
     Dosage: 4000 MG
     Route: 048
  6. NEXIUM [Concomitant]
     Active Substance: ESOMEPRAZOLE MAGNESIUM
     Dosage: 200 MG
     Route: 048
  7. CALFINA [Concomitant]
     Active Substance: ALFACALCIDOL
     Dosage: 1.0 ?G
     Route: 065
  8. ANAPEINE [Concomitant]
     Active Substance: ROPIVACAINE HYDROCHLORIDE
     Dosage: 96 MG
     Route: 008
     Dates: start: 20151014
  9. METHADONE [Suspect]
     Active Substance: METHADONE HYDROCHLORIDE
     Indication: PRODUCT USED FOR UNKNOWN INDICATION
     Dosage: 45 MG (135 MG TOTAL DOSE)
     Route: 048
     Dates: start: 20151021, end: 20151027
  10. METHADONE [Suspect]
     Active Substance: METHADONE HYDROCHLORIDE
     Dosage: 60 MG (180 MG TOTAL DOSE)
     Route: 048
     Dates: start: 20151114, end: 20151117
  11. PASETOCIN                          /00249601/ [Concomitant]
     Active Substance: AMOXICILLIN
     Dosage: 750 MG
     Route: 048
     Dates: start: 20151014, end: 20151021
  12. METHADONE [Suspect]
     Active Substance: METHADONE HYDROCHLORIDE
     Dosage: 75 MG (225 MG TOTAL DOSE)
     Route: 048
     Dates: start: 20151104, end: 20151110
  13. DIAZEPAM. [Concomitant]
     Active Substance: DIAZEPAM
     Indication: ANALGESIC THERAPY
     Dosage: 2 MG
     Route: 048
     Dates: start: 20151105
  14. MONILAC [Concomitant]
     Active Substance: LACTULOSE
     Dosage: 30 MG
     Route: 048
     Dates: start: 20151019
  15. METHADONE [Suspect]
     Active Substance: METHADONE HYDROCHLORIDE
     Dosage: 60 MG (180 MG TOTAL DOSE)
     Route: 048
     Dates: start: 20151028, end: 20151103
  16. METHADONE [Suspect]
     Active Substance: METHADONE HYDROCHLORIDE
     Dosage: 30 MG (90 MG TOTAL DOSE)
     Route: 048
     Dates: start: 20151118, end: 20151224
  17. OXIFAST [Concomitant]
     Active Substance: OXYCODONE
     Indication: ANALGESIC THERAPY
     Dosage: 3 MG, PRN
     Route: 051
     Dates: start: 20151020

REACTIONS (1)
  - Cervix carcinoma [Fatal]

NARRATIVE: CASE EVENT DATE: 20151224
